FAERS Safety Report 5250130-X (Version None)
Quarter: 2007Q1

REPORT INFORMATION
  Report Type: 
  Country: None (occurrence: None)
  Receive Date: 20070228
  Receipt Date: 20060420
  Transmission Date: 20070707
  Serious: No
  Sender: FDA-Public Use
  Company Number: US-GLAXOSMITHKLINE-A0593134A

PATIENT
  Age: 54 Year
  Sex: Female
  Weight: 85.5 kg

DRUGS (1)
  1. LAMICTAL [Suspect]
     Dosage: 25MG UNKNOWN
     Route: 048
     Dates: start: 20060125, end: 20060126

REACTIONS (6)
  - ABDOMINAL DISTENSION [None]
  - ADVERSE EVENT [None]
  - HEADACHE [None]
  - IMPAIRED DRIVING ABILITY [None]
  - MOTION SICKNESS [None]
  - PHOTOSENSITIVITY REACTION [None]
